FAERS Safety Report 14655899 (Version 2)
Quarter: 2018Q2

REPORT INFORMATION
  Report Type: Report from Study
  Country: CA (occurrence: CA)
  Receive Date: 20180319
  Receipt Date: 20180504
  Transmission Date: 20180711
  Serious: Yes (Other)
  Sender: FDA-Public Use
  Company Number: CA-TAKEDA-2018TUS006269

PATIENT
  Age: 58 Year
  Sex: Female

DRUGS (11)
  1. VEDOLIZUMAB [Suspect]
     Active Substance: VEDOLIZUMAB
     Indication: CROHN^S DISEASE
     Dosage: 300 MG, UNK
     Route: 042
     Dates: start: 20180306
  2. AMITRIPTYLINE [Concomitant]
     Active Substance: AMITRIPTYLINE
     Dosage: 25 MG, QD
  3. CODEINE CONTIN [Concomitant]
     Active Substance: CODEINE SULFATE
     Indication: PAIN
     Dosage: UNK
  4. VITAMIN D [Concomitant]
     Active Substance: CHOLECALCIFEROL
     Dosage: UNK UNK, QD
  5. OXAZEPAM. [Concomitant]
     Active Substance: OXAZEPAM
     Indication: MENOPAUSE
  6. VITAMIN B12 [Concomitant]
     Active Substance: CYANOCOBALAMIN
     Dosage: UNK, MONTHLY
  7. OXAZEPAM. [Concomitant]
     Active Substance: OXAZEPAM
     Indication: SLEEP DISORDER
     Dosage: 30 MG, UNK
  8. TYLENOL [Concomitant]
     Active Substance: ACETAMINOPHEN
     Dosage: UNK
  9. IMURAN [Concomitant]
     Active Substance: AZATHIOPRINE
     Dosage: 50 MG, BID
     Dates: start: 2007
  10. METFORMIN [Concomitant]
     Active Substance: METFORMIN HYDROCHLORIDE
     Dosage: 5 MG, TID
  11. FOLIC ACID. [Concomitant]
     Active Substance: FOLIC ACID
     Dosage: 5 MG, QD

REACTIONS (7)
  - Arthralgia [Not Recovered/Not Resolved]
  - Chills [Unknown]
  - Cystitis [Unknown]
  - Fatigue [Not Recovered/Not Resolved]
  - Pain [Unknown]
  - Pyrexia [Unknown]
  - Gastrointestinal obstruction [Unknown]

NARRATIVE: CASE EVENT DATE: 2018
